FAERS Safety Report 17547472 (Version 1)
Quarter: 2020Q1

REPORT INFORMATION
  Report Type: Report from Study
  Country: None (occurrence: US)
  Receive Date: 20200317
  Receipt Date: 20200317
  Transmission Date: 20200409
  Serious: Yes (Other)
  Sender: FDA-Public Use
  Company Number: US-ABBVIE-20K-163-3312316-00

PATIENT
  Sex: Male

DRUGS (1)
  1. HUMIRA [Suspect]
     Active Substance: ADALIMUMAB
     Indication: CROHN^S DISEASE
     Dosage: CITRATE FREE
     Route: 058

REACTIONS (9)
  - Fall [Recovering/Resolving]
  - Spinal cord compression [Recovering/Resolving]
  - Stress [Unknown]
  - Musculoskeletal disorder [Recovering/Resolving]
  - Central cord syndrome [Recovering/Resolving]
  - Muscle rupture [Unknown]
  - Loss of personal independence in daily activities [Unknown]
  - Unevaluable event [Recovering/Resolving]
  - Hand fracture [Unknown]
